FAERS Safety Report 13638089 (Version 1)
Quarter: 2017Q2

REPORT INFORMATION
  Report Type: Spontaneous
  Country: CA (occurrence: CA)
  Receive Date: 20170609
  Receipt Date: 20170609
  Transmission Date: 20170830
  Serious: Yes (Other)
  Sender: FDA-Public Use
  Company Number: CA-CELLTRION INC.-2017CA005624

PATIENT

DRUGS (9)
  1. INFLECTRA [Suspect]
     Active Substance: INFLIXIMAB-DYYB
     Dosage: 425 MG, CYCLIC
     Route: 042
  2. TYLENOL WITH CODEINE [Concomitant]
     Active Substance: ACETAMINOPHEN\CODEINE PHOSPHATE
     Dosage: 60 MG, 2X/DAY
     Route: 065
     Dates: start: 201704
  3. NEXIUM [Concomitant]
     Active Substance: ESOMEPRAZOLE MAGNESIUM
     Dosage: 40 MG, UNK
     Route: 048
  4. ZOPICLONE [Concomitant]
     Active Substance: ZOPICLONE
     Dosage: 5 MG, DAILY AT BEDTIME
     Route: 048
     Dates: start: 2016
  5. INFLECTRA [Suspect]
     Active Substance: INFLIXIMAB-DYYB
     Indication: PSORIATIC ARTHROPATHY
     Dosage: 255 MG, FOR THE FIRST INFUSTION CYCLIC (EVERY 2, 6 WEEKS THEN EVERY 8 WEEKS)
     Route: 042
     Dates: start: 20170504
  6. PREGABALIN. [Concomitant]
     Active Substance: PREGABALIN
     Dosage: 50 MG THREE TIMES DAILY
     Route: 065
     Dates: start: 2015
  7. PREDNISONE. [Concomitant]
     Active Substance: PREDNISONE
     Dosage: 20 MG, 1X/DAY
     Route: 048
     Dates: start: 20170412
  8. CANDESARTAN SANDOZ [Concomitant]
     Active Substance: CANDESARTAN
     Dosage: 8 MG TWICE DAILY
     Route: 048
     Dates: start: 2004
  9. METHOTREXATE. [Concomitant]
     Active Substance: METHOTREXATE
     Dosage: 25 MG, UNK
     Dates: start: 201607, end: 201703

REACTIONS (8)
  - Asthenia [Not Recovered/Not Resolved]
  - Furuncle [Unknown]
  - Confusional state [Unknown]
  - Eye swelling [Unknown]
  - Unresponsive to stimuli [Unknown]
  - Off label use [Unknown]
  - Pallor [Not Recovered/Not Resolved]
  - Blood pressure increased [Unknown]

NARRATIVE: CASE EVENT DATE: 201705
